FAERS Safety Report 9801989 (Version 2)
Quarter: 2014Q1

REPORT INFORMATION
  Report Type: Report from Study
  Country: BE (occurrence: BE)
  Receive Date: 20140107
  Receipt Date: 20140107
  Transmission Date: 20141002
  Serious: Yes (Hospitalization)
  Sender: FDA-Public Use
  Company Number: BE-BRISTOL-MYERS SQUIBB COMPANY-15645120

PATIENT
  Age: 29 Year
  Sex: Female

DRUGS (2)
  1. IPILIMUMAB [Suspect]
     Indication: MALIGNANT MELANOMA
     Route: 042
     Dates: start: 20110224, end: 20110328
  2. ENTOCORT [Concomitant]
     Dates: start: 20110301, end: 20110328

REACTIONS (2)
  - Diarrhoea [Recovered/Resolved with Sequelae]
  - Dehydration [Recovered/Resolved]
